FAERS Safety Report 7388405-0 (Version None)
Quarter: 2011Q2

REPORT INFORMATION
  Report Type: 
  Country: None (occurrence: None)
  Receive Date: 20110401
  Receipt Date: 20110323
  Transmission Date: 20111010
  Serious: Yes (Other)
  Sender: FDA-Public Use
  Company Number: CA-US-EMD SERONO, INC.-7037468

PATIENT
  Sex: Male

DRUGS (16)
  1. CIPRALEX [Concomitant]
  2. GEN-GLYBE [Concomitant]
  3. RATIO-ATORVASTATIN [Concomitant]
  4. REBIF [Suspect]
  5. ELTROXIN [Concomitant]
  6. REBIF [Suspect]
     Indication: RELAPSING-REMITTING MULTIPLE SCLEROSIS
     Route: 058
     Dates: start: 20101223
  7. NEXIUM [Concomitant]
  8. MYLAN-PIOGLITAZONE [Concomitant]
  9. FLOVEN [Concomitant]
  10. CORTISONE [Concomitant]
  11. REBIF [Suspect]
  12. METFORMIN HCL [Concomitant]
  13. GLYBURIDE [Concomitant]
  14. VALPROATE SODIUM [Concomitant]
  15. TEVA-AMLODIPINE [Concomitant]
  16. ANTIDEPRESSANT [Concomitant]

REACTIONS (13)
  - IRRITABILITY [None]
  - HEPATIC ENZYME INCREASED [None]
  - MALAISE [None]
  - DRY MOUTH [None]
  - VOMITING [None]
  - FEELING COLD [None]
  - DIARRHOEA [None]
  - INJECTION SITE ERYTHEMA [None]
  - HAEMATOCHEZIA [None]
  - INFLUENZA LIKE ILLNESS [None]
  - INJECTION SITE PRURITUS [None]
  - CHEST PAIN [None]
  - BILIARY TRACT DISORDER [None]
